FAERS Safety Report 11976688 (Version 1)
Quarter: 2016Q1

REPORT INFORMATION
  Report Type: Spontaneous
  Country: FR (occurrence: FR)
  Receive Date: 20160129
  Receipt Date: 20160129
  Transmission Date: 20160526
  Serious: Yes (Hospitalization)
  Sender: FDA-Public Use
  Company Number: FR-ROCHE-1702330

PATIENT
  Age: 68 Year
  Sex: Female

DRUGS (2)
  1. PACLITAXEL. [Concomitant]
     Active Substance: PACLITAXEL
     Dosage: WEEKLY (ON DAY 1 - ON DAY 8 - ON DAY 15)
     Route: 042
     Dates: start: 20150128, end: 20150428
  2. AVASTIN [Suspect]
     Active Substance: BEVACIZUMAB
     Indication: BREAST CANCER
     Dosage: 25 MG/ML
     Route: 041
     Dates: start: 20150211, end: 201510

REACTIONS (1)
  - Cardiomyopathy [Recovering/Resolving]

NARRATIVE: CASE EVENT DATE: 201510
